FAERS Safety Report 10545300 (Version 8)
Quarter: 2015Q3

REPORT INFORMATION
  Report Type: Report from Study
  Country: DE (occurrence: DE)
  Receive Date: 20141027
  Receipt Date: 20150709
  Transmission Date: 20151125
  Serious: Yes (Hospitalization)
  Sender: FDA-Public Use
  Company Number: PHHO2014DE014296

PATIENT
  Age: 60 Year
  Sex: Male
  Weight: 96.7 kg

DRUGS (10)
  1. ALLOPURINOL. [Concomitant]
     Active Substance: ALLOPURINOL
     Indication: HYPERURICAEMIA
     Dosage: 33 MG, QD
     Route: 048
     Dates: start: 1993
  2. LGH447 [Suspect]
     Active Substance: INVESTIGATIONAL PRODUCT
     Dosage: 350 MG/L, UNK
     Route: 048
     Dates: start: 20150623
  3. METOPROLOL [Concomitant]
     Active Substance: METOPROLOL
     Indication: HYPERTENSION
     Dosage: 95 MG, QD
     Route: 048
     Dates: start: 20140212
  4. RAMIPRIL. [Concomitant]
     Active Substance: RAMIPRIL
     Indication: HYPERTENSION
     Dosage: 5 MG, QD
     Route: 048
     Dates: start: 20140304
  5. IDEOS [Concomitant]
     Active Substance: CALCIUM CARBONATE\CHOLECALCIFEROL
     Indication: OSTEOPOROSIS PROPHYLAXIS
     Dosage: 500 MG/ 4000 IE, QD
     Route: 048
     Dates: start: 20140512, end: 20141020
  6. LGH447 [Suspect]
     Active Substance: INVESTIGATIONAL PRODUCT
     Dosage: 350 MG, UNK
     Route: 048
     Dates: start: 20141028, end: 20150210
  7. LGH447 [Suspect]
     Active Substance: INVESTIGATIONAL PRODUCT
     Indication: PLASMA CELL MYELOMA
     Dosage: 350 MG, UNK
     Route: 048
     Dates: start: 20131015, end: 20141015
  8. IDEOS [Concomitant]
     Active Substance: CALCIUM CARBONATE\CHOLECALCIFEROL
     Dosage: 500 MG/ 4000 IE, QD
     Route: 048
     Dates: start: 20141022
  9. ZOLEDRONATE [Suspect]
     Active Substance: ZOLEDRONIC ACID
     Indication: PROPHYLAXIS
     Dosage: 4 MG FOR EVERY SIX MONTH
     Route: 042
     Dates: start: 2010
  10. LGH447 [Suspect]
     Active Substance: INVESTIGATIONAL PRODUCT
     Dosage: 350 MG, UNK
     Route: 048
     Dates: start: 20150224, end: 20150612

REACTIONS (3)
  - Osteonecrosis of jaw [Recovered/Resolved with Sequelae]
  - Osteonecrosis of jaw [Recovered/Resolved with Sequelae]
  - Osteonecrosis of jaw [Recovered/Resolved with Sequelae]

NARRATIVE: CASE EVENT DATE: 20141013
